FAERS Safety Report 23350642 (Version 1)
Quarter: 2023Q4

REPORT INFORMATION
  Report Type: Spontaneous
  Country: GB (occurrence: GB)
  Receive Date: 20231229
  Receipt Date: 20231229
  Transmission Date: 20240109
  Serious: Yes (Other)
  Sender: FDA-Public Use
  Company Number: None

PATIENT
  Age: 32 Year
  Sex: Male

DRUGS (1)
  1. QUETIAPINE [Suspect]
     Active Substance: QUETIAPINE
     Indication: Ill-defined disorder
     Dosage: UNKNOWN
     Route: 065
     Dates: start: 20180209

REACTIONS (3)
  - Weight increased [Unknown]
  - Hallucination [Unknown]
  - Somnolence [Unknown]

NARRATIVE: CASE EVENT DATE: 20231215
